FAERS Safety Report 6181417-4 (Version None)
Quarter: 2009Q2

REPORT INFORMATION
  Report Type: 
  Country: None (occurrence: None)
  Receive Date: 20090501
  Receipt Date: 20090415
  Transmission Date: 20091009
  Serious: Yes (Other)
  Sender: FDA-Public Use
  Company Number: PAR_02941_2009

PATIENT
  Sex: Male

DRUGS (11)
  1. IBUPROFEN [Suspect]
     Indication: ANALGESIC THERAPY
     Dosage: (600 MG TID ORAL)
     Route: 048
     Dates: start: 20090212, end: 20090303
  2. RIVAROXABAN [Suspect]
     Indication: THROMBOSIS PROPHYLAXIS
     Dosage: (10 MG ORAL)
     Route: 048
     Dates: start: 20090212, end: 20090302
  3. NOVALGIN [Concomitant]
  4. TARGIN [Concomitant]
  5. PPI [Concomitant]
  6. PANTOZOL [Concomitant]
  7. JONOSTERIL [Concomitant]
  8. CEFAZOLIN [Concomitant]
  9. PROPOFOL [Concomitant]
  10. ATRACURIUM [Concomitant]
  11. FENTANYL [Concomitant]

REACTIONS (3)
  - DRUG INTERACTION [None]
  - POST PROCEDURAL DISCHARGE [None]
  - POST PROCEDURAL HAEMORRHAGE [None]
